FAERS Safety Report 5146892-2 (Version None)
Quarter: 2006Q4

REPORT INFORMATION
  Report Type: 
  Country: None (occurrence: None)
  Receive Date: 20061109
  Receipt Date: 20061103
  Transmission Date: 20070319
  Serious: Yes (Disabling, Other)
  Sender: FDA-Public Use
  Company Number: GB-GLAXOSMITHKLINE-B0445840A

PATIENT
  Age: 7 Year
  Sex: Female

DRUGS (2)
  1. LAMOTRIGINE [Suspect]
     Indication: EPILEPSY
     Dosage: 12MG UNKNOWN
     Route: 048
     Dates: start: 20040101, end: 20060401
  2. VALPROATE SODIUM [Concomitant]
     Indication: EPILEPSY
     Dosage: 300MG PER DAY
     Route: 048

REACTIONS (2)
  - EXCESSIVE MASTURBATION [None]
  - TIC [None]
